FAERS Safety Report 26157513 (Version 1)
Quarter: 2025Q4

REPORT INFORMATION
  Report Type: Spontaneous
  Country: US (occurrence: None)
  Receive Date: 20251212
  Receipt Date: 20251212
  Transmission Date: 20260117
  Serious: Yes (Hospitalization)
  Sender: FDA-CTU
  Company Number: None

PATIENT
  Age: 60 Year
  Sex: Male
  Weight: 66.8 kg

DRUGS (1)
  1. TACROLIMUS [Suspect]
     Active Substance: TACROLIMUS
     Indication: Renal transplant
     Dosage: 3 MG/MG BID ORAL
     Route: 048
     Dates: start: 20251020

REACTIONS (4)
  - Toe amputation [None]
  - Infection [None]
  - Head injury [None]
  - Syncope [None]

NARRATIVE: CASE EVENT DATE: 20251117
